FAERS Safety Report 11768395 (Version 2)
Quarter: 2015Q4

REPORT INFORMATION
  Report Type: Spontaneous
  Country: US (occurrence: US)
  Receive Date: 20151123
  Receipt Date: 20151124
  Transmission Date: 20160304
  Serious: Yes (Other)
  Sender: FDA-Public Use
  Company Number: US-JNJFOC-20151110838

PATIENT
  Age: 76 Year
  Sex: Female
  Weight: 40.82 kg

DRUGS (1)
  1. DESITIN MAXIMUM STRENGTH ORIGINAL [Suspect]
     Active Substance: ZINC OXIDE
     Indication: DECUBITUS ULCER
     Dosage: FINGERTIP
     Route: 061
     Dates: start: 20151108, end: 20151108

REACTIONS (3)
  - Product use issue [Recovered/Resolved]
  - Asthma [Recovered/Resolved]
  - Off label use [Recovered/Resolved]

NARRATIVE: CASE EVENT DATE: 20151108
